FAERS Safety Report 25790208 (Version 2)
Quarter: 2025Q3

REPORT INFORMATION
  Report Type: Spontaneous
  Country: JP (occurrence: JP)
  Receive Date: 20250911
  Receipt Date: 20250926
  Transmission Date: 20251021
  Serious: Yes (Hospitalization, Other)
  Sender: ASTELLAS
  Company Number: JP-ASTELLAS-2025-AER-048682

PATIENT
  Age: 9 Decade
  Sex: Male

DRUGS (2)
  1. PADCEV [Suspect]
     Active Substance: ENFORTUMAB VEDOTIN-EJFV
     Indication: Ureteric cancer
     Route: 065
  2. PEMBROLIZUMAB [Suspect]
     Active Substance: PEMBROLIZUMAB
     Indication: Ureteric cancer
     Route: 065

REACTIONS (3)
  - Erythema [Recovering/Resolving]
  - Oedema [Unknown]
  - Drug eruption [Unknown]
